FAERS Safety Report 14235931 (Version 13)
Quarter: 2021Q1

REPORT INFORMATION
  Report Type: Spontaneous
  Country: CA (occurrence: CA)
  Receive Date: 20171129
  Receipt Date: 20210304
  Transmission Date: 20210419
  Serious: Yes (Other)
  Sender: FDA-Public Use
  Company Number: CA-ORION CORPORATION ORION PHARMA-TREX2017-3893

PATIENT
  Age: 65 Year
  Sex: Female

DRUGS (70)
  1. ENBREL [Suspect]
     Active Substance: ETANERCEPT
     Indication: RHEUMATOID ARTHRITIS
     Route: 058
  2. SULFASALAZINE. [Suspect]
     Active Substance: SULFASALAZINE
     Route: 048
  3. XELJANZ [Suspect]
     Active Substance: TOFACITINIB CITRATE
     Route: 065
  4. APO?AZATHIOPRINE [Suspect]
     Active Substance: AZATHIOPRINE
     Indication: RHEUMATOID ARTHRITIS
     Route: 065
  5. MINOCYCLINE HYDROCHLORIDE. [Suspect]
     Active Substance: MINOCYCLINE HYDROCHLORIDE
     Indication: RHEUMATOID ARTHRITIS
     Route: 065
     Dates: start: 2006
  6. COSENTYX [Suspect]
     Active Substance: SECUKINUMAB
     Indication: PRODUCT USED FOR UNKNOWN INDICATION
     Route: 065
  7. HYDROXYCHLOROQUINE [Concomitant]
     Active Substance: HYDROXYCHLOROQUINE
     Route: 058
  8. BCG VACCINE [Concomitant]
     Active Substance: BCG VACCINE
     Route: 042
  9. METHOTREXATE (TRADE NAME UNKNOWN) [Suspect]
     Active Substance: METHOTREXATE
     Indication: RHEUMATOID ARTHRITIS
     Route: 065
  10. METHOTREXATE (TRADE NAME UNKNOWN) [Suspect]
     Active Substance: METHOTREXATE
     Route: 058
  11. SULFASALAZINE. [Suspect]
     Active Substance: SULFASALAZINE
     Indication: RHEUMATOID ARTHRITIS
     Route: 065
  12. XELJANZ [Suspect]
     Active Substance: TOFACITINIB CITRATE
     Indication: RHEUMATOID ARTHRITIS
     Route: 048
  13. HUMIRA [Suspect]
     Active Substance: ADALIMUMAB
     Route: 058
  14. MINOCYCLINE [Suspect]
     Active Substance: MINOCYCLINE HYDROCHLORIDE
     Indication: PRODUCT USED FOR UNKNOWN INDICATION
     Route: 065
  15. HYDROXYCHLOROQUINE SULFATE. [Suspect]
     Active Substance: HYDROXYCHLOROQUINE SULFATE
     Route: 065
  16. HYDROXYCHLOROQUINE SULFATE. [Suspect]
     Active Substance: HYDROXYCHLOROQUINE SULFATE
     Route: 065
  17. HYDROXYCHLOROQUINE [Concomitant]
     Active Substance: HYDROXYCHLOROQUINE
     Indication: RHEUMATOID ARTHRITIS
     Route: 065
  18. BCG VACCINE [Concomitant]
     Active Substance: BCG VACCINE
     Route: 065
  19. METHOTREXATE (TRADE NAME UNKNOWN) [Suspect]
     Active Substance: METHOTREXATE
     Route: 058
  20. ENBREL [Suspect]
     Active Substance: ETANERCEPT
     Route: 065
  21. ARAVA [Suspect]
     Active Substance: LEFLUNOMIDE
     Indication: RHEUMATOID ARTHRITIS
     Route: 065
  22. ARAVA [Suspect]
     Active Substance: LEFLUNOMIDE
     Route: 048
  23. ARAVA [Suspect]
     Active Substance: LEFLUNOMIDE
     Route: 048
  24. ARAVA [Suspect]
     Active Substance: LEFLUNOMIDE
     Route: 048
  25. AZATHIOPRINE. [Suspect]
     Active Substance: AZATHIOPRINE
     Route: 065
  26. HUMIRA [Suspect]
     Active Substance: ADALIMUMAB
     Route: 065
  27. PLAQUENIL [Suspect]
     Active Substance: HYDROXYCHLOROQUINE SULFATE
     Indication: RHEUMATOID ARTHRITIS
     Route: 065
  28. HYDROXYCHLOROQUINE SULFATE. [Suspect]
     Active Substance: HYDROXYCHLOROQUINE SULFATE
     Indication: RHEUMATOID ARTHRITIS
     Route: 048
  29. CLAVULIN [Concomitant]
     Active Substance: AMOXICILLIN\CLAVULANATE POTASSIUM
     Route: 065
  30. METHOTREXATE (TRADE NAME UNKNOWN) [Suspect]
     Active Substance: METHOTREXATE
     Route: 058
  31. ENBREL [Suspect]
     Active Substance: ETANERCEPT
     Route: 058
  32. MINOCYCLINE HYDROCHLORIDE. [Suspect]
     Active Substance: MINOCYCLINE HYDROCHLORIDE
     Route: 065
  33. HYDROXYCHLOROQUINE SULFATE. [Suspect]
     Active Substance: HYDROXYCHLOROQUINE SULFATE
     Route: 065
  34. TALTZ [Suspect]
     Active Substance: IXEKIZUMAB
     Indication: PRODUCT USED FOR UNKNOWN INDICATION
     Route: 065
  35. GOLD [Concomitant]
     Active Substance: GOLD
     Route: 065
  36. ADALIMUMAB [Concomitant]
     Active Substance: ADALIMUMAB
     Route: 065
  37. ENBREL [Suspect]
     Active Substance: ETANERCEPT
     Route: 058
  38. HUMIRA [Suspect]
     Active Substance: ADALIMUMAB
     Indication: RHEUMATOID ARTHRITIS
     Route: 058
  39. PLAQUENIL [Suspect]
     Active Substance: HYDROXYCHLOROQUINE SULFATE
     Route: 048
  40. CODEINE [Suspect]
     Active Substance: CODEINE
     Indication: PRODUCT USED FOR UNKNOWN INDICATION
     Route: 065
  41. BCG VACCINE [Concomitant]
     Active Substance: BCG VACCINE
     Route: 042
  42. XELJANZ [Suspect]
     Active Substance: TOFACITINIB CITRATE
     Route: 065
  43. AZATHIOPRINE. [Suspect]
     Active Substance: AZATHIOPRINE
     Indication: PRODUCT USED FOR UNKNOWN INDICATION
     Route: 065
  44. HUMIRA [Suspect]
     Active Substance: ADALIMUMAB
     Route: 065
  45. RITUXAN [Suspect]
     Active Substance: RITUXIMAB
     Route: 065
  46. RITUXAN [Suspect]
     Active Substance: RITUXIMAB
     Route: 041
  47. MINOCYCLINE HYDROCHLORIDE. [Suspect]
     Active Substance: MINOCYCLINE HYDROCHLORIDE
     Route: 065
  48. ORENCIA [Suspect]
     Active Substance: ABATACEPT
     Indication: RHEUMATOID ARTHRITIS
     Route: 065
  49. AMOXICILLIN. [Concomitant]
     Active Substance: AMOXICILLIN
     Route: 065
  50. METHOTREXATE (TRADE NAME UNKNOWN) [Suspect]
     Active Substance: METHOTREXATE
     Route: 058
  51. SULFASALAZINE. [Suspect]
     Active Substance: SULFASALAZINE
     Route: 065
  52. HUMIRA [Suspect]
     Active Substance: ADALIMUMAB
     Route: 058
  53. TETRACYCLINE HCL [Suspect]
     Active Substance: TETRACYCLINE HYDROCHLORIDE
     Indication: PRODUCT USED FOR UNKNOWN INDICATION
     Route: 065
  54. LEFLUNOMIDE. [Concomitant]
     Active Substance: LEFLUNOMIDE
     Indication: RHEUMATOID ARTHRITIS
     Dosage: 20 UNK
     Route: 065
  55. AMOXICILLIN TRIHYDRATE AND CLAVULANTE POTASS [Concomitant]
     Route: 065
  56. RISEDRONATE [Concomitant]
     Active Substance: RISEDRONATE SODIUM
     Route: 048
  57. ENBREL [Suspect]
     Active Substance: ETANERCEPT
     Route: 065
  58. ARAVA [Suspect]
     Active Substance: LEFLUNOMIDE
     Route: 048
  59. MINOCYCLINE [Suspect]
     Active Substance: MINOCYCLINE HYDROCHLORIDE
     Indication: RHEUMATOID ARTHRITIS
     Route: 065
  60. MINOCYCLINE [Suspect]
     Active Substance: MINOCYCLINE HYDROCHLORIDE
     Route: 065
  61. RITUXAN [Suspect]
     Active Substance: RITUXIMAB
     Indication: RHEUMATOID ARTHRITIS
     Route: 042
  62. APO?AZATHIOPRINE [Suspect]
     Active Substance: AZATHIOPRINE
     Route: 065
  63. APO?HYDROXYQUINE [Suspect]
     Active Substance: HYDROXYCHLOROQUINE SULFATE
     Indication: PRODUCT USED FOR UNKNOWN INDICATION
     Route: 065
  64. RITUXIMAB. [Suspect]
     Active Substance: RITUXIMAB
     Indication: RHEUMATOID ARTHRITIS
     Route: 041
  65. LEFLUNOMIDE. [Concomitant]
     Active Substance: LEFLUNOMIDE
     Route: 065
  66. HYDROXYCHLOROQUINE [Concomitant]
     Active Substance: HYDROXYCHLOROQUINE
     Route: 065
  67. AMOXIL [Concomitant]
     Active Substance: AMOXICILLIN
     Route: 065
  68. CLAVULIN [Concomitant]
     Active Substance: AMOXICILLIN\CLAVULANATE POTASSIUM
     Route: 065
  69. AMOXIL [Concomitant]
     Active Substance: AMOXICILLIN
     Route: 065
  70. PREDNISONE. [Concomitant]
     Active Substance: PREDNISONE
     Indication: PSORIATIC ARTHROPATHY
     Route: 065

REACTIONS (3)
  - Drug hypersensitivity [Unknown]
  - Non-Hodgkin^s lymphoma [Unknown]
  - Rheumatoid arthritis [Unknown]
